FAERS Safety Report 5029015-X (Version None)
Quarter: 2006Q2

REPORT INFORMATION
  Report Type: 
  Country: None (occurrence: None)
  Receive Date: 20060613
  Receipt Date: 20060608
  Transmission Date: 20061013
  Serious: Yes (Hospitalization)
  Sender: FDA-Public Use
  Company Number: A600425410/PHRM2005FR01570

PATIENT
  Age: 80 Year
  Sex: Male

DRUGS (10)
  1. AK-FLUOR (FLUORESCEIN SODIUM) SOLUTION FOR INJECTION [Suspect]
     Indication: ANGIOGRAM RETINA
     Dosage: INTRAVENOUS
     Route: 042
     Dates: start: 20050329, end: 20050329
  2. ALLOPURINOL [Concomitant]
  3. AMAREL (GLIMEPIRIDE) TABLET [Concomitant]
  4. ALDACTAZINE (ALTIZIDE, SPIRONOLACTONE) TABLET [Concomitant]
  5. LOPRESSOR (METOPROLOL TARTRATE) SLOW RELEASE TABLET [Concomitant]
  6. COVERSYL (PERINDOPRIL) TABLET [Concomitant]
  7. HYPERIUM (RELMINIDINE) TABLET [Concomitant]
  8. FONZYLANE (BUFLOMEDIL HCI) TABLET [Concomitant]
  9. XANAX [Concomitant]
  10. ATHYMIL (MIANSERIN HCI) TABLET [Concomitant]

REACTIONS (2)
  - VASCULAR PURPURA [None]
  - VASCULITIS NECROTISING [None]
